FAERS Safety Report 9612006 (Version 2)
Quarter: 2013Q4

REPORT INFORMATION
  Report Type: Spontaneous
  Country: FR (occurrence: FR)
  Receive Date: 20131010
  Receipt Date: 20131018
  Transmission Date: 20140711
  Serious: Yes (Hospitalization)
  Sender: FDA-Public Use
  Company Number: FR-SA-2013SA100353

PATIENT
  Age: 44 Year
  Sex: Female

DRUGS (15)
  1. LOVENOX [Suspect]
     Indication: PRODUCT USED FOR UNKNOWN INDICATION
     Route: 058
     Dates: start: 20130410, end: 20130418
  2. ORBENINE [Suspect]
     Indication: PRODUCT USED FOR UNKNOWN INDICATION
     Route: 048
     Dates: start: 20130411, end: 20130417
  3. RIBAVIRIN [Concomitant]
     Indication: PRODUCT USED FOR UNKNOWN INDICATION
     Route: 048
     Dates: start: 20120619
  4. VALIUM [Concomitant]
     Indication: DRUG DEPENDENCE
     Route: 048
  5. VALIUM [Concomitant]
     Indication: DRUG DEPENDENCE
     Route: 048
  6. EPOETIN BETA [Concomitant]
     Indication: PRODUCT USED FOR UNKNOWN INDICATION
     Route: 042
  7. METHADONE [Concomitant]
     Indication: DRUG DEPENDENCE
     Route: 048
  8. METHADONE [Concomitant]
     Indication: DRUG DEPENDENCE
     Route: 048
  9. NEFOPAM [Concomitant]
     Route: 048
  10. VICTRELIS [Concomitant]
     Route: 048
     Dates: start: 20120619
  11. TARDYFERON [Concomitant]
     Route: 048
  12. MOGADON [Concomitant]
     Dosage: DOSE: 2
     Route: 048
  13. PEGASYS [Concomitant]
     Dosage: 0.149DF BY WEEK
     Dates: start: 20120619
  14. VENTOLINE [Concomitant]
  15. PARACETAMOL [Concomitant]
     Indication: PYREXIA

REACTIONS (1)
  - Neutropenia [Unknown]
